FAERS Safety Report 4536350-8 (Version None)
Quarter: 2004Q4

REPORT INFORMATION
  Report Type: 
  Country: None (occurrence: None)
  Receive Date: 20041223
  Receipt Date: 20040806
  Transmission Date: 20050328
  Serious: No
  Sender: FDA-Public Use
  Company Number: US-GLAXOSMITHKLINE-A0521304A

PATIENT
  Age: 25 Year
  Sex: Male

DRUGS (2)
  1. FLONASE [Suspect]
     Dosage: 2SPR PER DAY
     Route: 045
     Dates: start: 20040401
  2. NO CONCURRENT MEDICATION [Concomitant]

REACTIONS (2)
  - INTRANASAL NUMBNESS [None]
  - NASAL OEDEMA [None]
